FAERS Safety Report 6316022-X (Version None)
Quarter: 2009Q3

REPORT INFORMATION
  Report Type: 
  Country: None (occurrence: None)
  Receive Date: 20090820
  Receipt Date: 20090817
  Transmission Date: 20100115
  Serious: Yes (Hospitalization, Other)
  Sender: FDA-Public Use
  Company Number: FR-BRISTOL-MYERS SQUIBB COMPANY-14744775

PATIENT
  Age: 40 Year
  Sex: Female

DRUGS (2)
  1. REYATAZ [Suspect]
     Route: 048
     Dates: start: 20060101
  2. REBETOL [Interacting]
     Dates: start: 20071101, end: 20090601

REACTIONS (2)
  - DRUG INTERACTION [None]
  - RENAL COLIC [None]
